FAERS Safety Report 21397532 (Version 1)
Quarter: 2022Q3

REPORT INFORMATION
  Report Type: Spontaneous
  Country: US (occurrence: US)
  Receive Date: 20220930
  Receipt Date: 20220930
  Transmission Date: 20221027
  Serious: Yes (Other)
  Sender: FDA-Public Use
  Company Number: US-ELI_LILLY_AND_COMPANY-US202010011676

PATIENT
  Sex: Male
  Weight: 147.4 kg

DRUGS (3)
  1. VRAYLAR [Suspect]
     Active Substance: CARIPRAZINE
     Indication: Schizophrenia
     Dosage: UNK UNK
  2. ZYPREXA [Suspect]
     Active Substance: OLANZAPINE
     Indication: Product used for unknown indication
     Dosage: UNK UNK
  3. TYLENOL [Concomitant]
     Active Substance: ACETAMINOPHEN
     Indication: Headache

REACTIONS (8)
  - Accident [Unknown]
  - Gangrene [Unknown]
  - Injury [Unknown]
  - Weight increased [Unknown]
  - Erectile dysfunction [Unknown]
  - Metabolic disorder [Unknown]
  - Sensory loss [Unknown]
  - Visual impairment [Unknown]
